FAERS Safety Report 9432564 (Version 1)
Quarter: 2013Q3

REPORT INFORMATION
  Report Type: Report from Study
  Country: BR (occurrence: BR)
  Receive Date: 20130731
  Receipt Date: 20130731
  Transmission Date: 20140515
  Serious: Yes (Life-Threatening, Other)
  Sender: FDA-Public Use
  Company Number: PHHY2013BR081324

PATIENT
  Age: 82 Year
  Sex: Female
  Weight: 65 kg

DRUGS (6)
  1. EXELON [Suspect]
     Indication: DEMENTIA ALZHEIMER^S TYPE
     Dosage: 1 DF, BID
     Dates: start: 20130720, end: 20130721
  2. CAPTOPRIL [Concomitant]
     Dosage: UNK UKN, UNK
  3. LOSARTAN [Concomitant]
     Dosage: UNK UKN, UNK
  4. ATENOLOL [Concomitant]
     Dosage: UNK UKN, UNK
  5. LASIX [Concomitant]
     Dosage: UNK UKN, UNK
     Dates: start: 20130718
  6. NEULEPTIL [Concomitant]
     Dosage: FROM 5 TO 7 DROPS

REACTIONS (12)
  - Apparent death [Recovered/Resolved]
  - Asthma [Recovered/Resolved]
  - Feeling abnormal [Recovered/Resolved]
  - Weight increased [Recovered/Resolved]
  - Hypertensive crisis [Recovered/Resolved]
  - Blood pressure increased [Recovered/Resolved]
  - Abdominal pain [Recovered/Resolved]
  - Vomiting [Recovered/Resolved]
  - Nausea [Recovered/Resolved]
  - Tremor [Recovered/Resolved]
  - Malaise [Recovered/Resolved]
  - Headache [Recovered/Resolved]
